FAERS Safety Report 17689111 (Version 1)
Quarter: 2020Q2

REPORT INFORMATION
  Report Type: Spontaneous
  Country: US (occurrence: US)
  Receive Date: 20200421
  Receipt Date: 20200421
  Transmission Date: 20200714
  Serious: Yes (Other)
  Sender: FDA-Public Use
  Company Number: US-TEVA-2020-US-1224596

PATIENT
  Age: 6 Year
  Sex: Male

DRUGS (4)
  1. VINCRISTINE [Suspect]
     Active Substance: VINCRISTINE
     Indication: GLIONEURONAL TUMOUR
     Route: 065
  2. CARBOPLATIN. [Concomitant]
     Active Substance: CARBOPLATIN
     Indication: METASTASES TO MENINGES
  3. CARBOPLATIN. [Concomitant]
     Active Substance: CARBOPLATIN
     Indication: GLIONEURONAL TUMOUR
  4. VINCRISTINE [Suspect]
     Active Substance: VINCRISTINE
     Indication: METASTASES TO MENINGES

REACTIONS (1)
  - Neuropathy peripheral [Unknown]
